FAERS Safety Report 22637325 (Version 1)
Quarter: 2023Q2

REPORT INFORMATION
  Report Type: Report from Study
  Country: TH (occurrence: TH)
  Receive Date: 20230626
  Receipt Date: 20230626
  Transmission Date: 20230721
  Serious: Yes (Other)
  Sender: FDA-Public Use
  Company Number: TH-TAKEDA-2023TUS061017

PATIENT
  Age: 83 Year
  Sex: Female

DRUGS (1)
  1. MOBOCERTINIB [Suspect]
     Active Substance: MOBOCERTINIB
     Indication: Non-small cell lung cancer
     Dosage: UNK
     Route: 065

REACTIONS (4)
  - Sepsis [Unknown]
  - Pustule [Unknown]
  - White blood cell count increased [Unknown]
  - Fatigue [Unknown]
